FAERS Safety Report 4590189-6 (Version None)
Quarter: 2005Q1

REPORT INFORMATION
  Report Type: 
  Country: None (occurrence: None)
  Receive Date: 20050217
  Receipt Date: 20050204
  Transmission Date: 20050727
  Serious: Yes (Hospitalization)
  Sender: FDA-Public Use
  Company Number: 2005BI002562

PATIENT
  Age: 53 Year
  Sex: Female

DRUGS (2)
  1. AVONEX [Suspect]
     Indication: MULTIPLE SCLEROSIS
     Dosage: 30 UG; QW; IM
     Route: 030
     Dates: end: 20040101
  2. AVONEX [Suspect]
     Indication: MULTIPLE SCLEROSIS
     Dosage: 30 UG; QWL IM
     Route: 030
     Dates: start: 20040101

REACTIONS (6)
  - ASTHENIA [None]
  - CONDITION AGGRAVATED [None]
  - GAIT DISTURBANCE [None]
  - MULTIPLE SCLEROSIS [None]
  - WALKING AID USER [None]
  - WHEELCHAIR USER [None]
